FAERS Safety Report 14353696 (Version 1)
Quarter: 2018Q1

REPORT INFORMATION
  Report Type: Spontaneous
  Country: CZ (occurrence: CZ)
  Receive Date: 20180105
  Receipt Date: 20180105
  Transmission Date: 20180509
  Serious: Yes (Other)
  Sender: FDA-Public Use
  Company Number: CZ-ACCORD-061979

PATIENT
  Age: 22 Year
  Sex: Male

DRUGS (7)
  1. CYTARABINE/CYTARABINE HYDROCHLORIDE/CYTARABINE OCFOSFATE [Suspect]
     Active Substance: CYTARABINE
     Indication: PROPHYLACTIC CHEMOTHERAPY
     Route: 037
     Dates: start: 201504
  2. ETOPOSIDE. [Suspect]
     Active Substance: ETOPOSIDE
     Indication: CHEMOTHERAPY
     Route: 037
     Dates: start: 201506
  3. MERCAPTOPURINE/MERCAPTOPURINE ANHYDROUS [Suspect]
     Active Substance: MERCAPTOPURINE
     Indication: PROPHYLACTIC CHEMOTHERAPY
     Route: 037
     Dates: start: 201504
  4. VINDESINE/VINDESINE SULFATE [Suspect]
     Active Substance: VINDESINE
     Indication: PROPHYLACTIC CHEMOTHERAPY
     Route: 037
     Dates: start: 201506
  5. CYCLOPHOSPHAMIDE/CYCLOPHOSPHAMIDE MONOHYDRATE [Suspect]
     Active Substance: CYCLOPHOSPHAMIDE
     Indication: PROPHYLACTIC CHEMOTHERAPY
     Route: 037
     Dates: start: 201504
  6. DEXAMETHASONE. [Suspect]
     Active Substance: DEXAMETHASONE
     Indication: PROPHYLACTIC CHEMOTHERAPY
     Route: 037
     Dates: start: 201504
  7. METHOTREXATE. [Suspect]
     Active Substance: METHOTREXATE
     Indication: PROPHYLACTIC CHEMOTHERAPY
     Route: 037
     Dates: start: 201504

REACTIONS (3)
  - Stomatitis [Unknown]
  - Odynophagia [Unknown]
  - Liver disorder [Unknown]

NARRATIVE: CASE EVENT DATE: 201504
